FAERS Safety Report 5936893-6 (Version None)
Quarter: 2008Q4

REPORT INFORMATION
  Report Type: 
  Country: None (occurrence: None)
  Receive Date: 20081031
  Receipt Date: 20081021
  Transmission Date: 20090506
  Serious: Yes (Hospitalization)
  Sender: FDA-Public Use
  Company Number: US-JNJFOC-20080702565

PATIENT
  Sex: Male
  Weight: 102.06 kg

DRUGS (20)
  1. DURAGESIC-100 [Suspect]
     Route: 062
  2. DURAGESIC-100 [Suspect]
     Route: 062
  3. DURAGESIC-100 [Suspect]
     Route: 062
  4. DURAGESIC-100 [Suspect]
     Route: 062
  5. DURAGESIC-100 [Suspect]
     Indication: DRUG USE FOR UNKNOWN INDICATION
     Route: 062
  6. ACTIQ [Suspect]
     Route: 002
  7. ACTIQ [Suspect]
     Route: 002
  8. ACTIQ [Suspect]
     Dosage: UP TO 9 LOZENGES DAILY
     Route: 002
  9. ACTIQ [Suspect]
     Route: 002
  10. ACTIQ [Suspect]
     Indication: ARTHRALGIA
     Route: 002
  11. HYDROCODONE BITARTRATE [Suspect]
     Indication: DRUG USE FOR UNKNOWN INDICATION
     Route: 048
  12. AMBIEN [Concomitant]
  13. ATIVAN [Concomitant]
  14. EFFEXOR [Concomitant]
  15. NORCO [Concomitant]
  16. ULTRAM [Concomitant]
  17. NEURONTIN [Concomitant]
  18. NEURONTIN [Concomitant]
  19. VICOPROFEN [Concomitant]
     Indication: BREAKTHROUGH PAIN
  20. ZOSTRIX CREAM [Concomitant]

REACTIONS (8)
  - COGNITIVE DISORDER [None]
  - DEPRESSION [None]
  - DRUG DEPENDENCE [None]
  - HALLUCINATION [None]
  - HALLUCINATION, AUDITORY [None]
  - INSOMNIA [None]
  - SOMNOLENCE [None]
  - TOOTH DISORDER [None]
